FAERS Safety Report 4983601-1 (Version None)
Quarter: 2006Q2

REPORT INFORMATION
  Report Type: 
  Country: None (occurrence: None)
  Receive Date: 20060426
  Receipt Date: 20051027
  Transmission Date: 20061013
  Serious: Yes (Hospitalization)
  Sender: FDA-Public Use
  Company Number: US-ROCHE-422835

PATIENT
  Age: 57 Year
  Sex: Female
  Weight: 80.7 kg

DRUGS (11)
  1. INTERFERON ALFA-2A [Suspect]
     Indication: RENAL CANCER METASTATIC
     Dosage: M-W-F
     Route: 058
     Dates: start: 20050523, end: 20050527
  2. INTERFERON ALFA-2A [Suspect]
     Dosage: M-W-F
     Route: 058
     Dates: start: 20050530, end: 20050603
  3. INTERFERON ALFA-2A [Suspect]
     Dosage: M-W-F
     Route: 058
     Dates: start: 20050613
  4. ZESTRIL [Concomitant]
     Route: 048
  5. AMBIEN [Concomitant]
     Route: 048
     Dates: start: 20050115
  6. EFFEXOR [Concomitant]
     Route: 048
     Dates: start: 20050530
  7. PREVACID [Concomitant]
     Route: 048
  8. ALLEGRA [Concomitant]
     Route: 048
     Dates: start: 20000615
  9. COLACE [Concomitant]
     Route: 048
     Dates: start: 20040115
  10. NEURONTIN [Concomitant]
     Route: 048
     Dates: start: 20030615
  11. TYLENOL (CAPLET) [Concomitant]
     Route: 048
     Dates: start: 20050523

REACTIONS (1)
  - PULMONARY EMBOLISM [None]
